FAERS Safety Report 15219612 (Version 2)
Quarter: 2019Q1

REPORT INFORMATION
  Report Type: Spontaneous
  Country: US (occurrence: US)
  Receive Date: 20180731
  Receipt Date: 20190102
  Transmission Date: 20190417
  Serious: Yes (Other)
  Sender: FDA-Public Use
  Company Number: US-SA-2018SA207216

PATIENT
  Age: 55 Year
  Sex: Female
  Weight: 68.03 kg

DRUGS (3)
  1. NORVASC [Concomitant]
     Active Substance: AMLODIPINE BESYLATE
  2. TAXOTERE [Suspect]
     Active Substance: DOCETAXEL
     Dosage: 128 ML, Q3W
     Route: 042
     Dates: start: 20160930, end: 20160930
  3. TAXOTERE [Suspect]
     Active Substance: DOCETAXEL
     Indication: BREAST CANCER FEMALE
     Dosage: 128 ML, Q3W
     Route: 042
     Dates: start: 20150505, end: 20150505

REACTIONS (2)
  - Alopecia [Recovering/Resolving]
  - Psychological trauma [Unknown]

NARRATIVE: CASE EVENT DATE: 201608
